FAERS Safety Report 7169370-8 (Version None)
Quarter: 2010Q4

REPORT INFORMATION
  Report Type: 
  Country: None (occurrence: None)
  Receive Date: 20101216
  Receipt Date: 20100108
  Transmission Date: 20110411
  Serious: No
  Sender: FDA-Public Use
  Company Number: US-AMGEN-KDL384488

PATIENT

DRUGS (6)
  1. ENBREL [Suspect]
     Indication: PRODUCT USED FOR UNKNOWN INDICATION
     Dosage: 50 MG, QWK
     Route: 058
  2. FOLIC ACID [Concomitant]
     Dosage: 1 MG, UNK
  3. BUPROPION [Concomitant]
     Dosage: 100 MG, UNK
  4. LAMOTRIGINE [Concomitant]
     Dosage: 100 MG, UNK
  5. MULTI-VITAMINS [Concomitant]
     Dosage: UNK UNK, UNK
  6. CALCIUM CARBONATE/VITAMIN D [Concomitant]
     Dosage: UNK UNK, UNK

REACTIONS (1)
  - INJECTION SITE SWELLING [None]
